FAERS Safety Report 20736499 (Version 4)
Quarter: 2022Q3

REPORT INFORMATION
  Report Type: Spontaneous
  Country: US (occurrence: US)
  Receive Date: 20220421
  Receipt Date: 20220720
  Transmission Date: 20221027
  Serious: No
  Sender: FDA-Public Use
  Company Number: US-PFIZER INC-202200187018

PATIENT
  Age: 67 Year
  Sex: Female

DRUGS (1)
  1. IBRANCE [Suspect]
     Active Substance: PALBOCICLIB
     Indication: Breast cancer female
     Dosage: TAKE 1 TABLET BY MOUTH EVERY DAY FOR 21 DAYS ON, THEN 1 WEEK OFF
     Route: 048
     Dates: start: 20220203

REACTIONS (2)
  - Product dose omission in error [Unknown]
  - Fatigue [Unknown]

NARRATIVE: CASE EVENT DATE: 20220203
